FAERS Safety Report 20501906 (Version 1)
Quarter: 2022Q1

REPORT INFORMATION
  Report Type: Spontaneous
  Country: US (occurrence: None)
  Receive Date: 20220218
  Receipt Date: 20220218
  Transmission Date: 20220423
  Serious: Yes (Other)
  Sender: FDA-Public Use
  Company Number: None

PATIENT
  Sex: Male

DRUGS (2)
  1. BRUT ANTI-PERSPIRANT AND DEODORANT CLASSIC SCENT [Suspect]
     Active Substance: ALUMINUM CHLOROHYDRATE
  2. TRIAMCINOLONE ACETONIDE [Concomitant]
     Active Substance: TRIAMCINOLONE ACETONIDE
     Dates: start: 20220215, end: 20220215

REACTIONS (1)
  - Rash [None]
